FAERS Safety Report 25974657 (Version 2)
Quarter: 2025Q4

REPORT INFORMATION
  Report Type: Spontaneous
  Country: US (occurrence: US)
  Receive Date: 20251029
  Receipt Date: 20251103
  Transmission Date: 20260118
  Serious: Yes (Hospitalization, Other)
  Sender: PFIZER
  Company Number: US-MLMSERVICE-20251017-PI680083-00145-1

PATIENT
  Age: 38 Year
  Sex: Male

DRUGS (1)
  1. FENTANYL CITRATE [Suspect]
     Active Substance: FENTANYL CITRATE
     Dosage: OVERDOSE

REACTIONS (4)
  - Overdose [Recovering/Resolving]
  - Brain injury [Recovering/Resolving]
  - Cardiac arrest [Recovering/Resolving]
  - Confusional state [Recovering/Resolving]
